FAERS Safety Report 25973831 (Version 1)
Quarter: 2025Q4

REPORT INFORMATION
  Report Type: Report from Study
  Country: US (occurrence: US)
  Receive Date: 20251029
  Receipt Date: 20251029
  Transmission Date: 20260118
  Serious: Yes (Other)
  Sender: TAKEDA
  Company Number: US-TAKEDA-2025TUS092289

PATIENT
  Age: 68 Year
  Sex: Female

DRUGS (1)
  1. VEDOLIZUMAB [Suspect]
     Active Substance: VEDOLIZUMAB
     Indication: Colitis ulcerative
     Dosage: 300 MILLIGRAM

REACTIONS (14)
  - Immunodeficiency [Unknown]
  - Hyperthyroidism [Unknown]
  - Actinic keratosis [Unknown]
  - Gastrooesophageal reflux disease [Unknown]
  - Hyperlipidaemia [Unknown]
  - Atrophic vulvovaginitis [Unknown]
  - Rotator cuff tear arthropathy [Unknown]
  - Pouchitis [Unknown]
  - Osteopenia [Unknown]
  - Thyroid mass [Unknown]
  - Intervertebral disc protrusion [Unknown]
  - Insomnia [Unknown]
  - Lichen sclerosus [Unknown]
  - Palpitations [Unknown]
